FAERS Safety Report 9081853 (Version 2)
Quarter: 2013Q1

REPORT INFORMATION
  Report Type: Spontaneous
  Country: US (occurrence: US)
  Receive Date: 20130130
  Receipt Date: 20130313
  Transmission Date: 20140127
  Serious: Yes (Hospitalization)
  Sender: FDA-Public Use
  Company Number: US-JNJFOC-20130113460

PATIENT
  Age: 5 Year
  Sex: Female

DRUGS (1)
  1. CHILDREN^S BENADRYL ALLERGY CHERRY LIQUID [Suspect]
     Indication: FOOD ALLERGY
     Dosage: 2 TEASPOONS
     Route: 048
     Dates: start: 19970910, end: 19970910

REACTIONS (3)
  - Cyclic vomiting syndrome [Recovered/Resolved]
  - Off label use [Unknown]
  - Drug administered to patient of inappropriate age [Unknown]
